FAERS Safety Report 21925896 (Version 1)
Quarter: 2023Q1

REPORT INFORMATION
  Report Type: Spontaneous
  Country: US (occurrence: None)
  Receive Date: 20230127
  Receipt Date: 20230127
  Transmission Date: 20230417
  Serious: Yes (Life-Threatening)
  Sender: FDA-Public Use
  Company Number: None

PATIENT
  Age: 77 Year
  Sex: Male

DRUGS (1)
  1. PRALUENT [Suspect]
     Active Substance: ALIROCUMAB
     Indication: Hypercholesterolaemia
     Dosage: OTHER FREQUENCY : N/A;?
     Route: 058
     Dates: start: 202112, end: 20230127

REACTIONS (2)
  - Prostate cancer [None]
  - Neoplasm malignant [None]

NARRATIVE: CASE EVENT DATE: 20230127
